FAERS Safety Report 6403039-X (Version None)
Quarter: 2009Q4

REPORT INFORMATION
  Report Type: 
  Country: None (occurrence: None)
  Receive Date: 20091013
  Receipt Date: 20091005
  Transmission Date: 20100525
  Serious: Yes (Hospitalization)
  Sender: FDA-Public Use
  Company Number: SPV1-2009-01986

PATIENT
  Age: 47 Year
  Sex: Male

DRUGS (1)
  1. FOSRENOL [Suspect]
     Indication: HYPERPHOSPHATAEMIA
     Dosage: 1500 MG, ORAL
     Route: 048
     Dates: start: 20090807, end: 20090914

REACTIONS (2)
  - ABDOMINAL PAIN UPPER [None]
  - DUODENAL ULCER HAEMORRHAGE [None]
